FAERS Safety Report 10405198 (Version 1)
Quarter: 2014Q3

REPORT INFORMATION
  Report Type: Spontaneous
  Country: US (occurrence: None)
  Receive Date: 20140820
  Receipt Date: 20140820
  Transmission Date: 20150326
  Serious: Yes (Hospitalization)
  Sender: FDA-Public Use
  Company Number: FK201403309

PATIENT
  Age: 55 Year
  Sex: Male

DRUGS (5)
  1. VANCOMYCIN (MANUFACTURER UNKNOWN) (VANCOMYCIN) (VANCOMYCIN) [Suspect]
     Active Substance: VANCOMYCIN
     Indication: EVIDENCE BASED TREATMENT
  2. DAPSONE (DAPSONE) [Concomitant]
  3. PIPERACILIN/TAZOBACTAM (PIP/TAZO) [Suspect]
     Active Substance: PIPERACILLIN SODIUM\TAZOBACTAM SODIUM
     Indication: PNEUMONIA
  4. VANCOMYCIN (MANUFACTURER UNKNOWN) (VANCOMYCIN) (VANCOMYCIN) [Suspect]
     Active Substance: VANCOMYCIN
     Indication: PNEUMONIA
  5. PIPERACILIN/TAZOBACTAM (PIP/TAZO) [Suspect]
     Active Substance: PIPERACILLIN SODIUM\TAZOBACTAM SODIUM
     Indication: EVIDENCE BASED TREATMENT

REACTIONS (5)
  - Cerebrovascular accident [None]
  - Pancytopenia [None]
  - Renal failure acute [None]
  - Rash maculo-papular [None]
  - Linear IgA disease [None]
